FAERS Safety Report 21818031 (Version 1)
Quarter: 2023Q1

REPORT INFORMATION
  Report Type: Spontaneous
  Country: US (occurrence: US)
  Receive Date: 20230104
  Receipt Date: 20230104
  Transmission Date: 20230418
  Serious: Yes (Other)
  Sender: FDA-Public Use
  Company Number: US-COOPERSURGICAL, INC.-US-2022CPS002024

PATIENT
  Sex: Female
  Weight: 65.306 kg

DRUGS (2)
  1. PARAGARD T 380A [Suspect]
     Active Substance: COPPER
     Indication: Product used for unknown indication
     Dosage: UNK
     Route: 015
     Dates: start: 20220321
  2. HEATHER [NORETHISTERONE] [Concomitant]
     Indication: Contraception
     Dosage: UNK
     Route: 048
     Dates: start: 202204

REACTIONS (3)
  - Embedded device [Not Recovered/Not Resolved]
  - Post procedural haemorrhage [Recovered/Resolved]
  - Discomfort [Recovered/Resolved]

NARRATIVE: CASE EVENT DATE: 20220101
